FAERS Safety Report 17743309 (Version 5)
Quarter: 2020Q2

REPORT INFORMATION
  Report Type: Report from Study
  Country: NL (occurrence: NL)
  Receive Date: 20200504
  Receipt Date: 20200618
  Transmission Date: 20200714
  Serious: Yes (Death, Hospitalization)
  Sender: FDA-Public Use
  Company Number: NVSC2020NL119972

PATIENT
  Age: 35 Year
  Sex: Female

DRUGS (2)
  1. ILARIS [Suspect]
     Active Substance: CANAKINUMAB
     Indication: STILL^S DISEASE
     Dosage: 150 MG, QMO
     Route: 058
     Dates: start: 20200303, end: 20200424
  2. ILARIS [Suspect]
     Active Substance: CANAKINUMAB
     Indication: CRYOPYRIN ASSOCIATED PERIODIC SYNDROME
     Dosage: 1 DF ( EVERY 4 WEEKS), Q4W
     Route: 058

REACTIONS (18)
  - Autoinflammatory disease [Fatal]
  - Dyspnoea [Fatal]
  - Off label use [Unknown]
  - Lymphadenopathy [Fatal]
  - Circulatory collapse [Fatal]
  - Haemophagocytic lymphohistiocytosis [Fatal]
  - Pyrexia [Fatal]
  - Hepatomegaly [Fatal]
  - Multiple organ dysfunction syndrome [Fatal]
  - Splenomegaly [Fatal]
  - Respiratory failure [Fatal]
  - Pulmonary hypertension [Fatal]
  - Haemodynamic instability [Fatal]
  - Malaise [Fatal]
  - Sepsis [Fatal]
  - Still^s disease [Fatal]
  - Infection [Fatal]
  - Suspected COVID-19 [Unknown]

NARRATIVE: CASE EVENT DATE: 20200407
